FAERS Safety Report 25855285 (Version 1)
Quarter: 2025Q3

REPORT INFORMATION
  Report Type: Spontaneous
  Country: EU (occurrence: EU)
  Receive Date: 20250927
  Receipt Date: 20250927
  Transmission Date: 20251021
  Serious: Yes (Other)
  Sender: NOVARTIS
  Company Number: None

PATIENT
  Age: 27 Year
  Sex: Female

DRUGS (1)
  1. OFATUMUMAB [Suspect]
     Active Substance: OFATUMUMAB
     Indication: Multiple sclerosis
     Dosage: 20 MG, Q4W (20 MG CADA 4 SEMANAS, 8426A)
     Route: 058
     Dates: start: 20250313, end: 20250806

REACTIONS (1)
  - Bullous impetigo [Recovering/Resolving]

NARRATIVE: CASE EVENT DATE: 20250505
